FAERS Safety Report 5902663-8 (Version None)
Quarter: 2008Q3

REPORT INFORMATION
  Report Type: 
  Country: None (occurrence: None)
  Receive Date: 20080929
  Receipt Date: 20080929
  Transmission Date: 20090109
  Serious: Yes (Life-Threatening, Hospitalization)
  Sender: FDA-Public Use
  Company Number: None

PATIENT
  Age: 62 Year
  Sex: Male

DRUGS (2)
  1. BOVINE THROMBIN  20,000 IU  KING PHARMACEUTICALS [Suspect]
     Indication: HAEMOSTASIS
     Dosage: 20,000 IU ONCE TOP;  20,000 IU ONCE TOP
     Route: 061
     Dates: start: 20080520, end: 20080520
  2. BOVINE THROMBIN  20,000 IU  KING PHARMACEUTICALS [Suspect]
     Indication: HAEMOSTASIS
     Dosage: 20,000 IU ONCE TOP;  20,000 IU ONCE TOP
     Route: 061
     Dates: start: 20080602, end: 20080602

REACTIONS (5)
  - ACTIVATED PARTIAL THROMBOPLASTIN TIME PROLONGED [None]
  - COAGULOPATHY [None]
  - FACTOR V DEFICIENCY [None]
  - PROTHROMBIN TIME PROLONGED [None]
  - RETROPERITONEAL HAEMATOMA [None]
